FAERS Safety Report 26032481 (Version 1)
Quarter: 2025Q4

REPORT INFORMATION
  Report Type: Spontaneous
  Country: US (occurrence: US)
  Receive Date: 20251112
  Receipt Date: 20251112
  Transmission Date: 20260117
  Serious: No
  Sender: AZURITY PHARMACEUTICALS
  Company Number: US-AZURITY PHARMACEUTICALS, INC.-AZR202504-001027

PATIENT
  Age: 37 Year
  Sex: Male

DRUGS (2)
  1. ZENZEDI [Suspect]
     Active Substance: DEXTROAMPHETAMINE SULFATE
     Indication: Attention deficit hyperactivity disorder
     Dosage: 30 MILLIGRAM, TID
     Route: 065
  2. ZENZEDI [Suspect]
     Active Substance: DEXTROAMPHETAMINE SULFATE
     Indication: Fatigue

REACTIONS (1)
  - Product use issue [Unknown]

NARRATIVE: CASE EVENT DATE: 20250101
